FAERS Safety Report 21659775 (Version 1)
Quarter: 2022Q4

REPORT INFORMATION
  Report Type: Report from Study
  Country: US (occurrence: US)
  Receive Date: 20221129
  Receipt Date: 20221129
  Transmission Date: 20230113
  Serious: No
  Sender: FDA-Public Use
  Company Number: US-ABBVIE-4176695

PATIENT
  Sex: Female

DRUGS (1)
  1. SKYRIZI [Suspect]
     Active Substance: RISANKIZUMAB-RZAA
     Indication: Crohn^s disease
     Route: 042
     Dates: start: 20221017

REACTIONS (6)
  - Headache [Recovering/Resolving]
  - Upper respiratory tract infection [Recovering/Resolving]
  - Head discomfort [Unknown]
  - Musculoskeletal discomfort [Unknown]
  - Lower respiratory tract congestion [Unknown]
  - Nasopharyngitis [Unknown]
